FAERS Safety Report 7099383-6 (Version None)
Quarter: 2010Q4

REPORT INFORMATION
  Report Type: 
  Country: None (occurrence: None)
  Receive Date: 20101112
  Receipt Date: 20101101
  Transmission Date: 20110411
  Serious: Yes (Hospitalization, Other)
  Sender: FDA-Public Use
  Company Number: US-AMGEN-USASP2008000004

PATIENT

DRUGS (1)
  1. ENBREL [Suspect]
     Indication: RHEUMATOID ARTHRITIS
     Dosage: 50 UNK, UNK
     Dates: start: 20000101, end: 20030101

REACTIONS (5)
  - DYSPEPSIA [None]
  - FEEDING DISORDER NEONATAL [None]
  - OLIGOHYDRAMNIOS [None]
  - PREMATURE BABY [None]
  - UMBILICAL CORD AROUND NECK [None]
